FAERS Safety Report 5113726-1 (Version None)
Quarter: 2006Q3

REPORT INFORMATION
  Report Type: 
  Country: None (occurrence: None)
  Receive Date: 20060920
  Receipt Date: 20060908
  Transmission Date: 20061208
  Serious: Yes (Hospitalization)
  Sender: FDA-Public Use
  Company Number: 2006110580

PATIENT
  Age: 71 Year
  Sex: Male

DRUGS (14)
  1. AMLODIPINE [Suspect]
     Dosage: 10 MG (5 MG, 2 IN 1 D), ORAL
     Route: 048
  2. ZOPICLONE               (ZOPICLONE) [Suspect]
     Dosage: 1 DF (DAILY), ORAL
     Route: 048
     Dates: end: 20060818
  3. PREDNISOLONE [Suspect]
     Dosage: 10 MG (DAILY), ORAL
     Route: 048
  4. XATRAL          (ALFUZOSIN) [Suspect]
     Dosage: 10 MG (DAILY), ORAL
     Route: 048
     Dates: end: 20060818
  5. LANTUS [Suspect]
     Dosage: (DAILY), ORAL
     Route: 048
     Dates: end: 20060816
  6. BISOPROLOL FUMARATE [Suspect]
     Dosage: 15 MG (10 MG, DAILY), ORAL
     Route: 048
  7. TAHOR                  (ATORVASTATIN) [Concomitant]
  8. VALGANCICLOVIR HCL [Concomitant]
  9. CELLCEPT [Concomitant]
  10. PROGRAF [Concomitant]
  11. PLAVIX [Concomitant]
  12. FERROUS SULFATE TAB [Concomitant]
  13. OMEPRAZOLE [Concomitant]
  14. ARANESP [Concomitant]

REACTIONS (7)
  - AGRANULOCYTOSIS [None]
  - DIARRHOEA [None]
  - GENERAL PHYSICAL HEALTH DETERIORATION [None]
  - HAEMOGLOBIN DECREASED [None]
  - LEUKOPENIA [None]
  - LYMPHOPENIA [None]
  - NEUTROPENIA [None]
